FAERS Safety Report 15483272 (Version 8)
Quarter: 2022Q3

REPORT INFORMATION
  Report Type: Report from Study
  Country: DE (occurrence: None)
  Receive Date: 20181010
  Receipt Date: 20220711
  Transmission Date: 20221027
  Serious: Yes (Life-Threatening, Hospitalization)
  Sender: FDA-Public Use
  Company Number: DE-ROCHE-2195749

PATIENT
  Age: 65 Year
  Sex: Female
  Weight: 59 kg

DRUGS (31)
  1. ATEZOLIZUMAB [Suspect]
     Active Substance: ATEZOLIZUMAB
     Indication: Ovarian cancer
     Dosage: DATE OF MOST RECENT DOSE (1200 MG) OF BLINDED ATEZOLIZUMAB: 18/SEP/2018?MOST RECENT DOSE ON 17/OCT/2
     Route: 042
     Dates: start: 20180424
  2. BEVACIZUMAB [Suspect]
     Active Substance: BEVACIZUMAB
     Indication: Ovarian cancer
     Dosage: DATE OF MOST RECENT DOSE (990 MG) OF BEVACIZUMAB PRIOR TO EVENT ONSET: 16/MAY/2018?MOST RECENT DOSE
     Route: 042
     Dates: start: 20180424
  3. PACLITAXEL [Suspect]
     Active Substance: PACLITAXEL
     Indication: Ovarian cancer
     Dosage: DATE OF MOST RECENT DOSE (295.75 MG) OF PACLITAXEL PRIOR TO EVENT ONSET: 18/SEP/2018?MOST RECENT DOS
     Route: 042
     Dates: start: 20180424
  4. CARBOPLATIN [Suspect]
     Active Substance: CARBOPLATIN
     Indication: Ovarian cancer
     Dosage: DATE OF MOST RECENT DOSE (491.52 MG) OF CARBOPLATIN PRIOR TO EVENT ONSET: 18/SEP/2018?MOST RECENT DO
     Route: 042
     Dates: start: 20180424
  5. PANTOPRAZOLE SODIUM [Concomitant]
     Active Substance: PANTOPRAZOLE SODIUM
     Indication: Prophylaxis
     Dates: start: 20180320
  6. NOVALGIN (METAMIZOLE SODIUM) [Concomitant]
     Active Substance: METAMIZOLE SODIUM
     Indication: Prophylaxis
     Dates: start: 20180320
  7. MUCOFALK [Concomitant]
     Indication: Prophylaxis
     Dates: start: 20180320
  8. FUROSEMIDE [Concomitant]
     Active Substance: FUROSEMIDE
     Indication: Oedema
     Dates: start: 20180320
  9. GRANISETRON [Concomitant]
     Active Substance: GRANISETRON
     Indication: Prophylaxis
     Dates: start: 20180918, end: 20180918
  10. GRANISETRON [Concomitant]
     Active Substance: GRANISETRON
     Dates: start: 20180828, end: 20180828
  11. GRANISETRON [Concomitant]
     Active Substance: GRANISETRON
     Dates: start: 20181017, end: 20181017
  12. RANITIDINE HYDROCHLORIDE [Concomitant]
     Active Substance: RANITIDINE HYDROCHLORIDE
     Indication: Prophylaxis
     Dates: start: 20180918, end: 20180918
  13. RANITIDINE HYDROCHLORIDE [Concomitant]
     Active Substance: RANITIDINE HYDROCHLORIDE
     Dates: start: 20180828, end: 20180828
  14. CLEMASTINE FUMARATE [Concomitant]
     Active Substance: CLEMASTINE FUMARATE
     Indication: Prophylaxis
     Dates: start: 20180918, end: 20180918
  15. CLEMASTINE FUMARATE [Concomitant]
     Active Substance: CLEMASTINE FUMARATE
     Indication: Infusion related reaction
     Dates: start: 20180828, end: 20180828
  16. CLEMASTINE FUMARATE [Concomitant]
     Active Substance: CLEMASTINE FUMARATE
     Dates: start: 20181017, end: 20181017
  17. DEXAMETHASONE [Concomitant]
     Active Substance: DEXAMETHASONE
     Indication: Prophylaxis
     Route: 042
     Dates: start: 20180918, end: 20180918
  18. DEXAMETHASONE [Concomitant]
     Active Substance: DEXAMETHASONE
     Route: 042
     Dates: start: 20180828, end: 20180828
  19. DEXAMETHASONE [Concomitant]
     Active Substance: DEXAMETHASONE
     Route: 042
     Dates: start: 20181017, end: 20181017
  20. PREDNISOLONE SODIUM SUCCINATE [Concomitant]
     Active Substance: PREDNISOLONE SODIUM SUCCINATE
     Indication: Infusion related reaction
     Route: 042
     Dates: start: 20180918, end: 20180918
  21. RANITIDINE HYDROCHLORIDE [Concomitant]
     Active Substance: RANITIDINE HYDROCHLORIDE
     Indication: Infusion related reaction
     Dates: start: 20180918, end: 20180918
  22. RANITIDINE HYDROCHLORIDE [Concomitant]
     Active Substance: RANITIDINE HYDROCHLORIDE
     Dates: start: 20181017, end: 20181017
  23. NALOXONE HYDROCHLORIDE\TILIDINE HYDROCHLORIDE [Concomitant]
     Active Substance: NALOXONE HYDROCHLORIDE\TILIDINE HYDROCHLORIDE
     Indication: Prophylaxis
     Dates: start: 20180606
  24. LOPERAMIDE [Concomitant]
     Active Substance: LOPERAMIDE
     Indication: Diarrhoea
     Dates: start: 20181029
  25. ENOXAPARIN SODIUM [Concomitant]
     Active Substance: ENOXAPARIN SODIUM
     Indication: Prophylaxis
     Dates: start: 20181029
  26. JONOSTERIL [Concomitant]
     Indication: Diarrhoea
     Dates: start: 20181029
  27. CEFUROXIME [Concomitant]
     Active Substance: CEFUROXIME
     Indication: Diarrhoea
     Dates: start: 20181029
  28. CLONT (GERMANY) [Concomitant]
     Indication: Diarrhoea
     Dates: start: 20181029
  29. ZOFRAN [Concomitant]
     Active Substance: ONDANSETRON HYDROCHLORIDE
     Indication: Nausea
  30. SODIUM PICOSULFATE [Concomitant]
     Active Substance: SODIUM PICOSULFATE
     Indication: Constipation prophylaxis
     Dates: start: 20180917
  31. CEFUROXIME [Concomitant]
     Active Substance: CEFUROXIME
     Dates: start: 20180723, end: 20180725

REACTIONS (3)
  - Platelet count decreased [Recovered/Resolved]
  - Wound dehiscence [Recovered/Resolved]
  - Platelet count decreased [Recovered/Resolved]

NARRATIVE: CASE EVENT DATE: 20180724
